FAERS Safety Report 4501858-8 (Version None)
Quarter: 2004Q4

REPORT INFORMATION
  Report Type: 
  Country: None (occurrence: None)
  Receive Date: 20041116
  Receipt Date: 20041110
  Transmission Date: 20050328
  Serious: Yes (Death)
  Sender: FDA-Public Use
  Company Number: US-JNJFOC-20041103110

PATIENT
  Sex: Female
  Weight: 45.36 kg

DRUGS (14)
  1. CISAPRIDE [Suspect]
     Dosage: DISCONTINUED  PRE-TRIAL
     Route: 049
  2. CISAPRIDE [Suspect]
     Route: 049
  3. MULTI-VITAMINS [Concomitant]
  4. MULTI-VITAMINS [Concomitant]
  5. MULTI-VITAMINS [Concomitant]
  6. MULTI-VITAMINS [Concomitant]
  7. MULTI-VITAMINS [Concomitant]
  8. MULTI-VITAMINS [Concomitant]
  9. MULTI-VITAMINS [Concomitant]
  10. MULTI-VITAMINS [Concomitant]
     Indication: ROUTINE HEALTH MAINTENANCE
  11. PAMIDRONATE DISODIUM [Concomitant]
     Indication: OSTEOPOROSIS
     Route: 042
  12. CYCLOSPORINE [Concomitant]
     Indication: SJOGREN'S SYNDROME
     Dosage: 0.5% SOLUTION, WITH TREATMENT TO BOTH EYES
     Route: 014
  13. NEXIUM [Concomitant]
     Route: 049
  14. MIRALAX [Concomitant]
     Indication: CONSTIPATION
     Dosage: 4 SCOOPS/DAY

REACTIONS (1)
  - DEATH [None]
